FAERS Safety Report 8139749-6 (Version None)
Quarter: 2012Q1

REPORT INFORMATION
  Report Type: 
  Country: None (occurrence: None)
  Receive Date: 20120215
  Receipt Date: 20120207
  Transmission Date: 20120608
  Serious: Yes (Other)
  Sender: FDA-Public Use
  Company Number: FR-ASTRAZENECA-2012SE09208

PATIENT
  Age: 50 Year
  Sex: Female

DRUGS (3)
  1. CRESTOR [Suspect]
     Route: 048
     Dates: start: 20080901
  2. LEVOTHYROXINE SODIUM [Concomitant]
  3. FUCIDINE CAP [Interacting]
     Indication: IMPETIGO
     Route: 048
     Dates: start: 20120113, end: 20120124

REACTIONS (7)
  - C-REACTIVE PROTEIN INCREASED [None]
  - PRURITUS [None]
  - DRUG INTERACTION [None]
  - GAMMA-GLUTAMYLTRANSFERASE INCREASED [None]
  - RASH [None]
  - PYREXIA [None]
  - CYTOLYTIC HEPATITIS [None]
